FAERS Safety Report 5289335-0 (Version None)
Quarter: 2007Q2

REPORT INFORMATION
  Report Type: 
  Country: None (occurrence: None)
  Receive Date: 20070406
  Receipt Date: 20070326
  Transmission Date: 20071010
  Serious: Yes (Other)
  Sender: FDA-Public Use
  Company Number: US-NOVOPROD-247460

PATIENT
  Sex: Female
  Weight: 63.492 kg

DRUGS (6)
  1. ACTIVELLA [Suspect]
     Indication: MENOPAUSE
     Dosage: UNKNOWN
     Dates: start: 20020515
  2. PREMARIN [Suspect]
     Indication: MENOPAUSE
     Dosage: UNKNOWN
     Dates: start: 20040401, end: 20040901
  3. PREMPRO [Suspect]
     Indication: MENOPAUSE
     Dosage: UNKNOWN
     Dates: start: 19970101, end: 20040101
  4. PREMPHASE 14/14 [Suspect]
     Indication: MENOPAUSE
     Dosage: UNKNOWN
     Dates: start: 20030504, end: 20030602
  5. ZESTRIL [Concomitant]
     Indication: HYPERTENSION
     Dosage: 5 MG, UNK
     Dates: start: 20040108
  6. ASPIRIN [Concomitant]
     Indication: ANTICOAGULANT THERAPY

REACTIONS (1)
  - BREAST CANCER METASTATIC [None]
